FAERS Safety Report 7037674-5 (Version None)
Quarter: 2010Q4

REPORT INFORMATION
  Report Type: 
  Country: None (occurrence: None)
  Receive Date: 20101011
  Receipt Date: 20101006
  Transmission Date: 20110411
  Serious: Yes (Death)
  Sender: FDA-Public Use
  Company Number: GB-BAYER-201034370GPV

PATIENT
  Age: 64 Year
  Sex: Male
  Weight: 93 kg

DRUGS (1)
  1. SORAFENIB OR PLACEBO [Suspect]
     Indication: RENAL CELL CARCINOMA
     Dosage: UNIT DOSE: 400 MG
     Route: 048
     Dates: start: 20080807, end: 20100225

REACTIONS (2)
  - DEATH [None]
  - MYOCARDIAL ISCHAEMIA [None]
